FAERS Safety Report 15298278 (Version 1)
Quarter: 2018Q3

REPORT INFORMATION
  Report Type: Spontaneous
  Country: NO (occurrence: GB)
  Receive Date: 20180820
  Receipt Date: 20180820
  Transmission Date: 20181010
  Serious: Yes (Disabling)
  Sender: FDA-Public Use
  Company Number: GB-ALLERGAN-1840460US

PATIENT
  Sex: Female

DRUGS (1)
  1. BOTULINUM TOXIN TYPE A UNK [Suspect]
     Active Substance: BOTULINUM TOXIN TYPE A
     Indication: SKIN COSMETIC PROCEDURE
     Dosage: UNK, SINGLE
     Route: 030
     Dates: start: 201504, end: 201504

REACTIONS (8)
  - Injection site pain [Recovered/Resolved]
  - Facial paralysis [Recovered/Resolved with Sequelae]
  - Fatigue [Unknown]
  - Fibromyalgia [Unknown]
  - Influenza like illness [Unknown]
  - Seizure [Not Recovered/Not Resolved]
  - VIIth nerve injury [Not Recovered/Not Resolved]
  - Malaise [Unknown]

NARRATIVE: CASE EVENT DATE: 2015
